FAERS Safety Report 9450249 (Version 1)
Quarter: 2013Q3

REPORT INFORMATION
  Report Type: Report from Study
  Country: FR (occurrence: FR)
  Receive Date: 20130809
  Receipt Date: 20130809
  Transmission Date: 20140515
  Serious: Yes (Hospitalization, Other)
  Sender: FDA-Public Use
  Company Number: FR-PFIZER INC-2013224578

PATIENT
  Age: 63 Year
  Sex: Male
  Weight: 93 kg

DRUGS (4)
  1. IRINOTECAN HCL [Suspect]
     Indication: COLON CANCER METASTATIC
     Dosage: 250 MG/M2, CYCLIC
     Dates: start: 20110811, end: 20120730
  2. XELODA [Suspect]
     Indication: COLON CANCER METASTATIC
     Dosage: 46 UNK, CYCLIC
     Dates: start: 20101006, end: 20120730
  3. ERBITUX [Suspect]
     Indication: COLON CANCER METASTATIC
     Dosage: 250 MG/M2, CYCLIC
     Dates: start: 20110811, end: 20120730
  4. INNOHEP [Concomitant]
     Dosage: 0.8 ML, UNK
     Dates: start: 20120806, end: 20120825

REACTIONS (4)
  - Catheter site infection [Recovered/Resolved]
  - Sepsis [Recovered/Resolved]
  - Hyperthermia [Recovered/Resolved]
  - Chills [Recovered/Resolved]
